FAERS Safety Report 17439849 (Version 2)
Quarter: 2020Q1

REPORT INFORMATION
  Report Type: Spontaneous
  Country: IT (occurrence: IT)
  Receive Date: 20200220
  Receipt Date: 20200225
  Transmission Date: 20200409
  Serious: Yes (Death, Hospitalization, Other)
  Sender: FDA-Public Use
  Company Number: IT-MYLANLABS-2020M1018355

PATIENT
  Age: 40 Year
  Sex: Male

DRUGS (28)
  1. CLOZAPINE. [Suspect]
     Active Substance: CLOZAPINE
     Indication: BIPOLAR I DISORDER
     Dosage: INITIAL DOSE
     Route: 048
  2. MIDAZOLAM HYDROCHLORIDE. [Suspect]
     Active Substance: MIDAZOLAM HYDROCHLORIDE
     Indication: AGITATION
  3. SODIUM VALPROATE [Interacting]
     Active Substance: VALPROATE SODIUM
     Indication: BIPOLAR I DISORDER
     Dosage: ON DAY 1 OF ADMISSION (AT NIGHT); ON DAY 2 OF ADMISSION (AT 8:00 PM)
     Route: 048
  4. CHLORPROMAZINE. [Suspect]
     Active Substance: CHLORPROMAZINE
     Indication: AGITATION
     Dosage: ON DAY 2 OF ADMISSION (AT NIGHT)
     Route: 030
  5. CHLORPHENIRAMINE                   /00072501/ [Suspect]
     Active Substance: CHLORPHENIRAMINE
     Indication: BIPOLAR I DISORDER
     Dosage: ON DAY 1 OF ADMISSION (AT 8:00 PM)
     Route: 042
  6. CLOTIAPINE [Suspect]
     Active Substance: CLOTHIAPINE
     Indication: INSOMNIA
     Dosage: ON DAY 3 OF ADMISSION (AT 8:00 AM, 1:00 PM AND 8:00 PM)
     Route: 030
  7. CLOZAPINE. [Interacting]
     Active Substance: CLOZAPINE
     Dosage: ON DAY 2 OF ADMISSION (AT 8:00 PM)
     Route: 048
  8. CLOZAPINE. [Interacting]
     Active Substance: CLOZAPINE
     Dosage: ON DAY 5 OF ADMISSION (8:00 AM AND 1:00 PM)
     Route: 048
  9. DELORAZEPAM [Suspect]
     Active Substance: DELORAZEPAM
     Dosage: ON DAY 2 OF ADMISSION (AT NIGHT)
     Route: 030
  10. HALOPERIDOL. [Interacting]
     Active Substance: HALOPERIDOL
     Indication: BIPOLAR I DISORDER
     Dosage: ON DAY 4 ON ADMISSION (AT 8:00 PM)
     Route: 048
  11. MIDAZOLAM HYDROCHLORIDE. [Suspect]
     Active Substance: MIDAZOLAM HYDROCHLORIDE
     Indication: INSOMNIA
  12. PROMAZINE [Interacting]
     Active Substance: PROMAZINE
     Indication: BIPOLAR I DISORDER
     Dosage: ON DAY 3 AND 4 OF ADMISSION (AT NIGHT)
     Route: 048
  13. FLUVOXAMINE [Interacting]
     Active Substance: FLUVOXAMINE
     Indication: BIPOLAR I DISORDER
     Dosage: 200 MILLIGRAM, QD
     Route: 048
  14. CHLORPHENIRAMINE                   /00072501/ [Suspect]
     Active Substance: CHLORPHENIRAMINE
     Indication: AGITATION
  15. CLOTIAPINE [Suspect]
     Active Substance: CLOTHIAPINE
     Indication: AGITATION
  16. CLOZAPINE. [Interacting]
     Active Substance: CLOZAPINE
     Dosage: ON DAY 3 OF ADMISSION (8:00 AM, 1:00 PM AND 8:00 PM)
     Route: 048
  17. CLOZAPINE. [Interacting]
     Active Substance: CLOZAPINE
     Dosage: ON DAY 4 OF ADMISSION (8:00 AM, 1:00 PM, 8:00 PM AND AT NIGHT)
     Route: 048
  18. DELORAZEPAM [Suspect]
     Active Substance: DELORAZEPAM
     Indication: BIPOLAR I DISORDER
     Dosage: ON DAY 3,4 AND 5 OF ADMISSION (AT NIGHT)
     Route: 048
  19. SODIUM VALPROATE [Interacting]
     Active Substance: VALPROATE SODIUM
     Indication: AGITATION
     Dosage: ON DAY 3, 4 AND 5 OF ADMISSION (AT 8:00 AM, 1:00 PM AND 8:00 PM)
     Route: 048
  20. HALOPERIDOL. [Interacting]
     Active Substance: HALOPERIDOL
     Dosage: ON DAY 5 ON ADMISSION (AT 8:00 AM AND 8:00 PM)
     Route: 048
  21. SODIUM VALPROATE [Interacting]
     Active Substance: VALPROATE SODIUM
     Indication: INSOMNIA
  22. DELORAZEPAM [Suspect]
     Active Substance: DELORAZEPAM
     Indication: BIPOLAR I DISORDER
     Dosage: ON DAY 1 OF ADMISSION (AT 8:00 PM)
     Route: 042
  23. MIDAZOLAM HYDROCHLORIDE. [Suspect]
     Active Substance: MIDAZOLAM HYDROCHLORIDE
     Indication: BIPOLAR I DISORDER
     Dosage: ON DAY 1 OF ADMISSION (1:00 PM 15MG AND AT NIGHT 5MG)
     Route: 042
  24. PROMAZINE [Interacting]
     Active Substance: PROMAZINE
     Dosage: ON DAY 5 OF ADMISSION (AT 1:00 PM AND NIGHT)
     Route: 048
  25. CHLORPROMAZINE. [Suspect]
     Active Substance: CHLORPROMAZINE
     Indication: BIPOLAR I DISORDER
     Dosage: ON DAY 1 OF ADMISSION (AT 8:000 PM)
     Route: 042
  26. CHLORPROMAZINE. [Suspect]
     Active Substance: CHLORPROMAZINE
     Indication: INSOMNIA
  27. HALOPERIDOL. [Interacting]
     Active Substance: HALOPERIDOL
     Indication: BIPOLAR I DISORDER
     Dosage: ON DAY 1 ON ADMISSION (AT 1:00 PM)
     Route: 042
  28. CLOTIAPINE [Suspect]
     Active Substance: CLOTHIAPINE
     Indication: BIPOLAR I DISORDER
     Dosage: ON DAY 1 OF ADMISSION (AT NIGHT); ON DAY 2 OF ADMISSION (AT 8:00 PM)
     Route: 030

REACTIONS (4)
  - Drug interaction [Fatal]
  - Drug ineffective [Unknown]
  - Drug level above therapeutic [Fatal]
  - Cardiac arrest [Fatal]
